FAERS Safety Report 9283580 (Version 1)
Quarter: 2013Q2

REPORT INFORMATION
  Report Type: Spontaneous
  Country: US (occurrence: US)
  Receive Date: 20130510
  Receipt Date: 20130510
  Transmission Date: 20140414
  Serious: Yes (Other)
  Sender: FDA-Public Use
  Company Number: US-ASTRAZENECA-2013SE31270

PATIENT
  Age: 87 Year
  Sex: Female

DRUGS (6)
  1. BRILINTA [Suspect]
     Indication: ACUTE CORONARY SYNDROME
     Route: 048
  2. ASPIRIN [Concomitant]
  3. NITROGLYCERIN [Concomitant]
  4. STATIN [Concomitant]
  5. BETA BLOCKER [Concomitant]
  6. LMWH [Concomitant]

REACTIONS (2)
  - Troponin increased [Unknown]
  - Chest pain [Unknown]
